FAERS Safety Report 15534156 (Version 2)
Quarter: 2019Q1

REPORT INFORMATION
  Report Type: Spontaneous
  Country: US (occurrence: US)
  Receive Date: 20181019
  Receipt Date: 20190107
  Transmission Date: 20190417
  Serious: Yes (Other)
  Sender: FDA-Public Use
  Company Number: US-SA-2018SA289532

PATIENT
  Sex: Female

DRUGS (4)
  1. DOCETAXEL. [Suspect]
     Active Substance: DOCETAXEL
     Dosage: 132 MG, Q3W
     Route: 042
     Dates: start: 20140902, end: 20140902
  2. DOCETAXEL. [Suspect]
     Active Substance: DOCETAXEL
     Dosage: 132 MG, Q3W
     Route: 042
     Dates: start: 20140519, end: 20140519
  3. NEOSAR [Concomitant]
     Active Substance: CYCLOPHOSPHAMIDE
  4. ADRIAMYCIN [DOXORUBICIN HYDROCHLORIDE] [Concomitant]

REACTIONS (1)
  - Alopecia [Not Recovered/Not Resolved]
